FAERS Safety Report 5910785-0 (Version None)
Quarter: 2008Q4

REPORT INFORMATION
  Report Type: 
  Country: None (occurrence: None)
  Receive Date: 20081007
  Receipt Date: 20080501
  Transmission Date: 20090506
  Serious: No
  Sender: FDA-Public Use
  Company Number: US-ASTRAZENECA-2008UW09012

PATIENT
  Age: 75 Year
  Sex: Female
  Weight: 77.1 kg

DRUGS (3)
  1. ARIMIDEX [Suspect]
     Indication: BREAST CANCER
     Route: 048
  2. HYDROCHLOROTHIAZIDE [Concomitant]
  3. ATENOLOL [Concomitant]
     Route: 048

REACTIONS (5)
  - ALOPECIA [None]
  - FATIGUE [None]
  - PAIN [None]
  - PARAESTHESIA [None]
  - SOMNOLENCE [None]
